FAERS Safety Report 6874350-3 (Version None)
Quarter: 2010Q3

REPORT INFORMATION
  Report Type: 
  Country: None (occurrence: None)
  Receive Date: 20100723
  Receipt Date: 20090608
  Transmission Date: 20110219
  Serious: Yes (Other)
  Sender: FDA-Public Use
  Company Number: US-PFIZER INC-2009191524

PATIENT
  Sex: Female
  Weight: 72.562 kg

DRUGS (5)
  1. CHANTIX [Suspect]
     Indication: SMOKING CESSATION THERAPY
     Dosage: 0.5 MG, 1X/DAY
     Route: 048
     Dates: start: 20090210
  2. PREMARIN [Concomitant]
     Dosage: UNK
  3. FORADIL [Concomitant]
     Indication: CHRONIC OBSTRUCTIVE PULMONARY DISEASE
     Dosage: UNK
  4. SPIRIVA [Concomitant]
     Dosage: UNK
  5. PREVACID [Concomitant]
     Dosage: UNK

REACTIONS (5)
  - HYPERTENSION [None]
  - MALAISE [None]
  - NAUSEA [None]
  - NIGHTMARE [None]
  - VOMITING [None]
